FAERS Safety Report 15724493 (Version 2)
Quarter: 2018Q4

REPORT INFORMATION
  Report Type: Spontaneous
  Country: JP (occurrence: JP)
  Receive Date: 20181214
  Receipt Date: 20181226
  Transmission Date: 20190205
  Serious: Yes (Hospitalization, Other)
  Sender: FDA-Public Use
  Company Number: JP-GLAXOSMITHKLINE-JP2018JPN223424

PATIENT
  Age: 19 Year
  Sex: Male

DRUGS (1)
  1. FLOLAN [Suspect]
     Active Substance: EPOPROSTENOL SODIUM
     Indication: PULMONARY ARTERIAL HYPERTENSION
     Dosage: UNK
     Route: 042

REACTIONS (3)
  - Basedow^s disease [Recovering/Resolving]
  - Goitre [Recovering/Resolving]
  - Hyperthyroidism [Recovering/Resolving]
